FAERS Safety Report 7046395-4 (Version None)
Quarter: 2010Q4

REPORT INFORMATION
  Report Type: 
  Country: None (occurrence: None)
  Receive Date: 20101014
  Receipt Date: 20100929
  Transmission Date: 20110411
  Serious: Yes (Hospitalization, Other)
  Sender: FDA-Public Use
  Company Number: CA-GENENTECH-301305

PATIENT
  Sex: Male
  Weight: 54 kg

DRUGS (1)
  1. OMALIZUMAB [Suspect]
     Indication: ASTHMA
     Dosage: 300 MG, Q2W
     Route: 058
     Dates: start: 20060202

REACTIONS (12)
  - ASTHMA [None]
  - CHEST PAIN [None]
  - COUGH [None]
  - DYSPNOEA [None]
  - EATING DISORDER [None]
  - OXYGEN SATURATION DECREASED [None]
  - PAIN [None]
  - PNEUMONIA [None]
  - RALES [None]
  - RIB FRACTURE [None]
  - URINARY TRACT INFECTION [None]
  - WHEEZING [None]
